FAERS Safety Report 4527147-3 (Version None)
Quarter: 2004Q4

REPORT INFORMATION
  Report Type: 
  Country: None (occurrence: None)
  Receive Date: 20041126
  Receipt Date: 20040914
  Transmission Date: 20050328
  Serious: Yes (Hospitalization)
  Sender: FDA-Public Use
  Company Number: 04P-163-0273168-00

PATIENT
  Age: 18 Year
  Sex: Female
  Weight: 68.9467 kg

DRUGS (7)
  1. DEPAKOTE ER [Suspect]
     Indication: AFFECTIVE DISORDER
     Dosage: 500 MG, 2 IN 1 D, ORAL
     Route: 048
     Dates: start: 20000101, end: 20040423
  2. RISPERIDONE [Suspect]
     Indication: AFFECTIVE DISORDER
     Dosage: 2 MG, 1 IN 1 D, ORAL
     Route: 048
     Dates: start: 20031001
  3. VENLAFAXINE HCL [Suspect]
     Indication: AFFECTIVE DISORDER
     Dosage: ORAL
     Route: 048
     Dates: start: 20040101, end: 20040301
  4. BUPROPION HYDROCHLORIDE [Suspect]
     Indication: DEPRESSION
     Dosage: ORAL
     Route: 048
     Dates: start: 20040429, end: 20040501
  5. STRATTERA [Concomitant]
  6. LEVOTHYROXINE SODIUM [Concomitant]
  7. QUETIAPINE [Concomitant]

REACTIONS (6)
  - CONVULSION [None]
  - DEPRESSION [None]
  - EYE MOVEMENT DISORDER [None]
  - FALL [None]
  - INTENTIONAL OVERDOSE [None]
  - WEIGHT INCREASED [None]
